FAERS Safety Report 7693880-8 (Version None)
Quarter: 2011Q3

REPORT INFORMATION
  Report Type: 
  Country: None (occurrence: None)
  Receive Date: 20110819
  Receipt Date: 20110811
  Transmission Date: 20111222
  Serious: Yes (Other)
  Sender: FDA-Public Use
  Company Number: FR-SANOFI-AVENTIS-2011SA035559

PATIENT
  Age: 84 Year
  Sex: Male
  Weight: 83 kg

DRUGS (5)
  1. MULTAQ [Suspect]
     Indication: ATRIAL FIBRILLATION
     Route: 048
     Dates: start: 20110503, end: 20110617
  2. ROSUVASTATIN [Concomitant]
     Route: 048
  3. PREVISCAN [Concomitant]
     Indication: ATRIAL FIBRILLATION
     Route: 048
  4. IKOREL [Concomitant]
     Route: 048
  5. BISOPROLOL FUMARATE [Concomitant]
     Route: 048

REACTIONS (4)
  - BLOOD CREATININE INCREASED [None]
  - CREATININE RENAL CLEARANCE DECREASED [None]
  - RENAL FAILURE [None]
  - BLOOD UREA INCREASED [None]
